FAERS Safety Report 17720268 (Version 2)
Quarter: 2020Q2

REPORT INFORMATION
  Report Type: Spontaneous
  Country: IT (occurrence: IT)
  Receive Date: 20200428
  Receipt Date: 20200603
  Transmission Date: 20200714
  Serious: Yes (Life-Threatening)
  Sender: FDA-Public Use
  Company Number: IT-009507513-2004ITA007914

PATIENT
  Age: 78 Year
  Sex: Female

DRUGS (2)
  1. MAVYRET [Interacting]
     Active Substance: GLECAPREVIR\PIBRENTASVIR
     Dosage: UNK
  2. SIMVASTATIN. [Suspect]
     Active Substance: SIMVASTATIN
     Dosage: 20 MILLIGRAM, QD

REACTIONS (3)
  - Acute kidney injury [Recovering/Resolving]
  - Drug interaction [Recovering/Resolving]
  - Rhabdomyolysis [Recovering/Resolving]

NARRATIVE: CASE EVENT DATE: 20200115
